FAERS Safety Report 15215692 (Version 2)
Quarter: 2018Q4

REPORT INFORMATION
  Report Type: Spontaneous
  Country: US (occurrence: US)
  Receive Date: 20180730
  Receipt Date: 20181018
  Transmission Date: 20190204
  Serious: Yes (Hospitalization)
  Sender: FDA-Public Use
  Company Number: US-NOVOPROD-612696

PATIENT
  Age: 10 Year
  Sex: Male
  Weight: 42.6 kg

DRUGS (1)
  1. FIASP [Suspect]
     Active Substance: INSULIN ASPART
     Indication: TYPE 1 DIABETES MELLITUS
     Dosage: DOSE CALCULATED BY PUMP
     Route: 058
     Dates: start: 20180504, end: 20180706

REACTIONS (4)
  - Product use issue [Recovered/Resolved]
  - Diabetic ketoacidosis [Recovered/Resolved]
  - Wrong technique in product usage process [Recovered/Resolved]
  - Glycosylated haemoglobin increased [Unknown]

NARRATIVE: CASE EVENT DATE: 2018
